FAERS Safety Report 5958466-1 (Version None)
Quarter: 2008Q4

REPORT INFORMATION
  Report Type: 
  Country: None (occurrence: None)
  Receive Date: 20081119
  Receipt Date: 20081112
  Transmission Date: 20090506
  Serious: Yes (Other)
  Sender: FDA-Public Use
  Company Number: GB-ROCHE-596889

PATIENT
  Sex: Female
  Weight: 115 kg

DRUGS (2)
  1. ORLISTAT [Suspect]
     Indication: OBESITY
     Route: 048
     Dates: start: 20070423, end: 20070908
  2. ORLISTAT [Suspect]
     Route: 048
     Dates: start: 20081022

REACTIONS (2)
  - ABDOMINAL OPERATION [None]
  - BLOOD PRESSURE INCREASED [None]
